FAERS Safety Report 11984311 (Version 1)
Quarter: 2016Q1

REPORT INFORMATION
  Report Type: Spontaneous
  Country: US (occurrence: US)
  Receive Date: 20160201
  Receipt Date: 20160201
  Transmission Date: 20160526
  Serious: No
  Sender: FDA-Public Use
  Company Number: US-KADMON PHARMACEUTICALS, LLC-KAD201410-001195

PATIENT
  Age: 55 Year
  Sex: Male
  Weight: 108.8 kg

DRUGS (3)
  1. PEGASYS [Suspect]
     Active Substance: PEGINTERFERON ALFA-2A
     Dosage: INJECTION
     Route: 058
     Dates: start: 20140813, end: 20141009
  2. SOVALDI [Suspect]
     Active Substance: SOFOSBUVIR
     Dosage: TABLET
     Dates: start: 20140813, end: 20141009
  3. RIBASPHERE RIBAPAK [Suspect]
     Active Substance: RIBAVIRIN
     Indication: HEPATITIS C
     Route: 048
     Dates: start: 20140813, end: 20141009

REACTIONS (4)
  - Abdominal pain upper [Unknown]
  - Anger [Recovered/Resolved]
  - Diarrhoea [Unknown]
  - Asthenia [Recovered/Resolved]

NARRATIVE: CASE EVENT DATE: 20140813
